FAERS Safety Report 9324565 (Version 3)
Quarter: 2014Q2

REPORT INFORMATION
  Report Type: Spontaneous
  Country: US (occurrence: US)
  Receive Date: 20130603
  Receipt Date: 20140408
  Transmission Date: 20141212
  Serious: Yes (Hospitalization)
  Sender: FDA-Public Use
  Company Number: US-B.I. PHARMACEUTICALS,INC./RIDGEFIELD-2013-BI-15305BP

PATIENT
  Age: 81 Year
  Sex: Male
  Weight: 99.79 kg

DRUGS (12)
  1. PRADAXA [Suspect]
     Indication: ATRIAL FIBRILLATION
     Dosage: 300 MG
     Route: 048
     Dates: start: 20110622, end: 20120410
  2. PRAVASTATIN [Concomitant]
     Dosage: 40 MG
     Route: 048
     Dates: start: 2007, end: 2012
  3. PREDNISONE [Concomitant]
     Dosage: 10 MG
     Route: 048
     Dates: start: 200708, end: 2013
  4. DOXYCYCLINE [Concomitant]
     Indication: ROSACEA
     Dosage: 100 MG
     Route: 048
     Dates: start: 2007, end: 2012
  5. PENTOXLY [Concomitant]
     Dosage: 1200 MG
     Route: 065
     Dates: start: 200908, end: 2013
  6. ALLOPURINOL [Concomitant]
     Dosage: 100 MG
     Route: 048
     Dates: start: 200908, end: 2013
  7. METOPROLOL [Concomitant]
     Dosage: 50 MG
     Route: 048
     Dates: start: 201009, end: 2013
  8. FAMOTIDINE [Concomitant]
     Dosage: 40 MG
     Route: 048
  9. LOSARTAN [Concomitant]
     Dosage: 50 MG
     Route: 048
  10. DEXILANT [Concomitant]
     Dosage: 150 MG
     Route: 048
  11. IRON [Concomitant]
     Dosage: 65 MG
     Route: 048
  12. ASPIRIN [Concomitant]
     Indication: ATRIAL FIBRILLATION
     Route: 065

REACTIONS (1)
  - Gastrointestinal haemorrhage [Recovered/Resolved]
